FAERS Safety Report 11980354 (Version 3)
Quarter: 2018Q4

REPORT INFORMATION
  Report Type: Spontaneous
  Country: US (occurrence: US)
  Receive Date: 20160129
  Receipt Date: 20181001
  Transmission Date: 20190204
  Serious: Yes (Hospitalization, Other)
  Sender: FDA-Public Use
  Company Number: US-DSJP-DSU-2015-133853

PATIENT

DRUGS (2)
  1. BENICAR [Suspect]
     Active Substance: OLMESARTAN MEDOXOMIL
     Dosage: 40 MG, QD
     Dates: start: 2011
  2. BENICAR [Suspect]
     Active Substance: OLMESARTAN MEDOXOMIL
     Indication: HYPERTENSION
     Dosage: 20 MG, QD

REACTIONS (15)
  - Lactose intolerance [Unknown]
  - Hiatus hernia [Unknown]
  - Gastritis erosive [Unknown]
  - Haemorrhoids [Unknown]
  - Cholelithiasis [Unknown]
  - Abdominal adhesions [Recovered/Resolved]
  - Gastrooesophageal reflux disease [Not Recovered/Not Resolved]
  - Depression [Unknown]
  - Hypotension [Not Recovered/Not Resolved]
  - Intestinal obstruction [Unknown]
  - Acute kidney injury [Unknown]
  - Gastric polyps [Recovered/Resolved]
  - Anxiety [Unknown]
  - Gastrointestinal bacterial overgrowth [Unknown]
  - Sprue-like enteropathy [Not Recovered/Not Resolved]

NARRATIVE: CASE EVENT DATE: 20100617
